FAERS Safety Report 13120682 (Version 1)
Quarter: 2017Q1

REPORT INFORMATION
  Report Type: Spontaneous
  Country: CA (occurrence: CA)
  Receive Date: 20170117
  Receipt Date: 20170117
  Transmission Date: 20170428
  Serious: Yes (Other)
  Sender: FDA-Public Use
  Company Number: CA-ORION CORPORATION ORION PHARMA-TREX2017-0188

PATIENT
  Age: 51 Year
  Sex: Female

DRUGS (9)
  1. FOLIC ACID. [Concomitant]
     Active Substance: FOLIC ACID
     Route: 065
  2. DIOVAN [Concomitant]
     Active Substance: VALSARTAN
     Route: 065
  3. NEXIUM [Suspect]
     Active Substance: ESOMEPRAZOLE MAGNESIUM
     Route: 065
  4. PREDNISONE. [Suspect]
     Active Substance: PREDNISONE
     Route: 065
  5. SULFASALAZINE. [Concomitant]
     Active Substance: SULFASALAZINE
     Route: 065
  6. METHOTREXATE (TRADE NAME UNKNOWN) [Suspect]
     Active Substance: METHOTREXATE
     Route: 065
  7. ENBREL [Suspect]
     Active Substance: ETANERCEPT
     Route: 058
  8. PLAQUENIL [Concomitant]
     Active Substance: HYDROXYCHLOROQUINE SULFATE
     Route: 065
  9. PREDNISOLONE. [Suspect]
     Active Substance: PREDNISOLONE
     Route: 065

REACTIONS (15)
  - Drug ineffective [Unknown]
  - Muscle strain [Unknown]
  - Upper-airway cough syndrome [Unknown]
  - Anxiety [Unknown]
  - Abdominal pain upper [Unknown]
  - Fall [Unknown]
  - Joint injury [Unknown]
  - Nausea [Unknown]
  - Pain [Unknown]
  - Paraesthesia [Unknown]
  - Arthritis [Unknown]
  - Rhinorrhoea [Unknown]
  - Neck pain [Unknown]
  - Pain in extremity [Unknown]
  - Headache [Unknown]
